FAERS Safety Report 7311728-8 (Version None)
Quarter: 2011Q1

REPORT INFORMATION
  Report Type: 
  Country: None (occurrence: None)
  Receive Date: 20110224
  Receipt Date: 20110221
  Transmission Date: 20110831
  Serious: Yes (Hospitalization)
  Sender: FDA-Public Use
  Company Number: SE-MERCK-1102SWE00071

PATIENT
  Age: 63 Year
  Sex: Female

DRUGS (4)
  1. OMEPRAZOLE [Concomitant]
     Route: 065
  2. NETILMICIN SULFATE [Concomitant]
     Route: 065
  3. PRIMAXIN [Suspect]
     Indication: AGRANULOCYTOSIS
     Route: 041
     Dates: start: 20101101, end: 20101101
  4. FLUCONAZOLE [Concomitant]
     Route: 065

REACTIONS (1)
  - DIARRHOEA INFECTIOUS [None]
